FAERS Safety Report 5607680-3 (Version None)
Quarter: 2008Q1

REPORT INFORMATION
  Report Type: 
  Country: None (occurrence: None)
  Receive Date: 20080130
  Receipt Date: 20080116
  Transmission Date: 20080703
  Serious: Yes (Other)
  Sender: FDA-Public Use
  Company Number: FR-AMGEN-US250109

PATIENT
  Sex: Female

DRUGS (1)
  1. ENBREL [Suspect]
     Indication: ANKYLOSING SPONDYLITIS
     Dosage: 50 MG LYOPHILIZED (FREQUENCY UNKNOWN)
     Route: 058
     Dates: start: 20060728, end: 20070601

REACTIONS (3)
  - ASTHMA [None]
  - FACE OEDEMA [None]
  - HYPERSENSITIVITY [None]
